FAERS Safety Report 4721752-7 (Version None)
Quarter: 2005Q3

REPORT INFORMATION
  Report Type: 
  Country: None (occurrence: None)
  Receive Date: 20050721
  Receipt Date: 20050329
  Transmission Date: 20060218
  Serious: No
  Sender: FDA-Public Use
  Company Number: US-BRISTOL-MYERS SQUIBB COMPANY-12914230

PATIENT
  Age: 76 Year
  Sex: Male
  Weight: 93 kg

DRUGS (5)
  1. COUMADIN [Suspect]
     Dosage: INITIATED AT 5 MG, INCREASED TO 10 MG THEN 7.5 MG ^FOR AWHILE NOW^
     Dates: start: 20041101
  2. DIGOXIN [Concomitant]
     Dosage: TWO .25 MG TABLETS DAILY
     Route: 048
     Dates: start: 20041101
  3. LISINOPRIL [Concomitant]
     Dates: start: 20041101
  4. METOPROLOL [Concomitant]
     Dosage: TWO 25 MG TABLETS DAILY
     Route: 048
  5. ATENOLOL [Concomitant]
     Dosage: BEGAN RECENTLY

REACTIONS (1)
  - INTERNATIONAL NORMALISED RATIO DECREASED [None]
